FAERS Safety Report 6010041-9 (Version None)
Quarter: 2008Q4

REPORT INFORMATION
  Report Type: 
  Country: None (occurrence: None)
  Receive Date: 20081218
  Receipt Date: 20081212
  Transmission Date: 20090506
  Serious: Yes (Other)
  Sender: FDA-Public Use
  Company Number: CH-ASTRAZENECA-2008PK02710

PATIENT
  Age: 56 Year
  Sex: Male
  Weight: 88 kg

DRUGS (2)
  1. CRESTOR [Suspect]
     Indication: HYPERCHOLESTEROLAEMIA
     Route: 048
     Dates: start: 20081111, end: 20081211
  2. FLAGYL [Suspect]
     Indication: ANTIBIOTIC THERAPY
     Route: 048
     Dates: start: 20081118, end: 20081121

REACTIONS (1)
  - HEPATITIS CHOLESTATIC [None]
